FAERS Safety Report 24884401 (Version 1)
Quarter: 2025Q1

REPORT INFORMATION
  Report Type: Spontaneous
  Country: GB (occurrence: GB)
  Receive Date: 20250124
  Receipt Date: 20250124
  Transmission Date: 20250408
  Serious: Yes (Life-Threatening, Other)
  Sender: DR REDDYS
  Company Number: None

PATIENT
  Age: 17 Year
  Sex: Male
  Weight: 64 kg

DRUGS (2)
  1. OLANZAPINE [Suspect]
     Active Substance: OLANZAPINE
     Indication: Psychotic disorder
     Dosage: 10MG ON (OMNI NOCTE) (EVERY NIGHT)
     Dates: start: 20241219, end: 20241230
  2. CLONAZEPAM [Concomitant]
     Active Substance: CLONAZEPAM
     Indication: Sedation
     Dates: start: 20241219

REACTIONS (1)
  - Neuroleptic malignant syndrome [Recovered/Resolved]

NARRATIVE: CASE EVENT DATE: 20241222
